FAERS Safety Report 6591211-8 (Version None)
Quarter: 2010Q1

REPORT INFORMATION
  Report Type: 
  Country: None (occurrence: None)
  Receive Date: 20100219
  Receipt Date: 20100208
  Transmission Date: 20100710
  Serious: Yes (Hospitalization, Other)
  Sender: FDA-Public Use
  Company Number: PHEH2008US01234

PATIENT
  Sex: Female
  Weight: 125.17 kg

DRUGS (62)
  1. ZOMETA [Suspect]
     Indication: NEOPLASM MALIGNANT
     Dosage: 4 MG, QMO
     Route: 042
     Dates: start: 20030616, end: 20060821
  2. TAXOTERE [Concomitant]
     Dosage: UNK
  3. OXYCONTIN [Concomitant]
     Dosage: 400 MG, Q8H
  4. OXYCODONE [Concomitant]
     Dosage: UNK
  5. ARIMIDEX [Concomitant]
  6. CHEMOTHERAPEUTICS NOS [Concomitant]
  7. TAMOXIFEN CITRATE [Concomitant]
     Dosage: UNK
     Dates: end: 20030101
  8. MULTI-VITAMINS [Concomitant]
  9. ASPIRIN [Concomitant]
  10. PAXIL [Concomitant]
     Dosage: 20 MG, QD
  11. CLONAZEPAM [Concomitant]
     Dosage: 0.5 MG, BID
  12. HYDROCHLOROTHIAZIDE [Concomitant]
  13. AROMASIN [Concomitant]
     Dosage: 250 MG, UNK
  14. PAROXETINE HCL [Concomitant]
  15. LYRICA [Concomitant]
  16. DIAZEPAM [Concomitant]
  17. CEFUROXIME [Concomitant]
  18. NYSTATIN [Concomitant]
  19. FLUCONAZOLE [Concomitant]
  20. PHENAZOPYRIDINE [Concomitant]
  21. NITROFURANTOIN [Concomitant]
  22. AVELOX [Concomitant]
  23. SULFAMETHOXYPYRAZINE/TRIMETHOPRIM [Concomitant]
  24. AMOXICILINA + CLAVULANICO [Concomitant]
  25. CHLORHEXIDINE GLUCONATE [Concomitant]
     Route: 048
  26. LIDODERM [Concomitant]
  27. NEULASTA [Concomitant]
  28. ERYTHROMYCIN [Concomitant]
  29. CEPHALEXIN [Concomitant]
  30. CLINDAMYCIN [Concomitant]
  31. LEVAQUIN [Concomitant]
  32. VALTREX [Concomitant]
  33. VFEND [Concomitant]
  34. ZYVOX [Concomitant]
  35. PENICILLIN ^GRUNENTHAL^ [Concomitant]
  36. VESICARE [Concomitant]
  37. MAG-OX [Concomitant]
  38. PANTOPRAZOLE [Concomitant]
  39. DEXAMETHASONE [Concomitant]
  40. MORPHINE [Concomitant]
  41. LOTRIMIN [Concomitant]
  42. HYDROXYZINE [Concomitant]
  43. IBUPROFEN [Concomitant]
  44. MIRALAX [Concomitant]
  45. PROCHLORPERAZINE [Concomitant]
  46. SENOKOT                                 /UNK/ [Concomitant]
  47. FLEXERIL [Concomitant]
  48. GABAPENTIN [Concomitant]
  49. CIPROFLOXACIN [Concomitant]
  50. CYCLOBENZAPRINE [Concomitant]
  51. M.V.I. [Concomitant]
  52. CALCIUM [Concomitant]
  53. TYLENOL-500 [Concomitant]
  54. ALEVE [Concomitant]
  55. KEFLEX [Concomitant]
  56. CENTRUM [Concomitant]
  57. LISINOPRIL [Concomitant]
  58. COMPAZINE [Concomitant]
  59. FASLODEX [Concomitant]
  60. INFLUENZA VACCINE [Concomitant]
  61. XANAX [Concomitant]
     Dosage: UNK
  62. VIOXX [Concomitant]
     Dosage: UNK

REACTIONS (50)
  - ABASIA [None]
  - ANHEDONIA [None]
  - ANXIETY [None]
  - BACK PAIN [None]
  - BEDRIDDEN [None]
  - BONE DEBRIDEMENT [None]
  - BONE MARROW FAILURE [None]
  - BREAST ABSCESS [None]
  - CENTRAL VENOUS CATHETERISATION [None]
  - CEREBROVASCULAR ACCIDENT [None]
  - COMPRESSION FRACTURE [None]
  - DEHYDRATION [None]
  - DEPRESSION [None]
  - DISABILITY [None]
  - DIVERTICULUM [None]
  - FACIAL PAIN [None]
  - FRACTURE [None]
  - HIP FRACTURE [None]
  - HUMERUS FRACTURE [None]
  - HYDROCEPHALUS [None]
  - HYPOAESTHESIA [None]
  - HYSTERECTOMY [None]
  - INJURY [None]
  - INTERVERTEBRAL DISC PROTRUSION [None]
  - ISCHAEMIA [None]
  - LYMPHADENOPATHY [None]
  - MALIGNANT NEOPLASM PROGRESSION [None]
  - METASTASES TO LIVER [None]
  - METASTASES TO SPINE [None]
  - MUSCULAR WEAKNESS [None]
  - MYOFASCIAL PAIN SYNDROME [None]
  - NERVE BLOCK [None]
  - NEUTROPENIA [None]
  - OPEN REDUCTION OF FRACTURE [None]
  - OSTEOARTHRITIS [None]
  - OSTEONECROSIS [None]
  - OSTEOPOROSIS [None]
  - PAIN [None]
  - PAIN IN JAW [None]
  - POLYNEUROPATHY [None]
  - PULMONARY EMBOLISM [None]
  - PYELONEPHRITIS ACUTE [None]
  - PYREXIA [None]
  - RADIOTHERAPY [None]
  - SPINAL DECOMPRESSION [None]
  - SYNOVIAL CYST [None]
  - TOOTH EXTRACTION [None]
  - URINARY TRACT INFECTION [None]
  - WEIGHT DECREASED [None]
  - WHITE BLOOD CELL COUNT DECREASED [None]
